FAERS Safety Report 23596294 (Version 1)
Quarter: 2024Q1

REPORT INFORMATION
  Report Type: Spontaneous
  Country: US (occurrence: US)
  Receive Date: 20240305
  Receipt Date: 20240305
  Transmission Date: 20240410
  Serious: No
  Sender: FDA-Public Use
  Company Number: US-SA-SAC20240301000175

PATIENT
  Age: 72 Year
  Sex: Female
  Weight: 122.47 kg

DRUGS (12)
  1. DUPIXENT [Suspect]
     Active Substance: DUPILUMAB
     Indication: Dermatitis atopic
     Dosage: 300 MG, QOW
     Route: 058
  2. PROLIA [Concomitant]
     Active Substance: DENOSUMAB
     Dosage: UNK
  3. HUMALOG [Concomitant]
     Active Substance: INSULIN LISPRO
     Dosage: UNK
  4. LANTUS SOLOSTAR [Concomitant]
     Active Substance: INSULIN GLARGINE
     Dosage: UNK
  5. CALCIUM [Concomitant]
     Active Substance: CALCIUM
     Dosage: UNK
  6. ASPIRIN [Concomitant]
     Active Substance: ASPIRIN
     Dosage: UNK
  7. CRESTOR [Concomitant]
     Active Substance: ROSUVASTATIN CALCIUM
     Dosage: UNK
  8. CARAFATE [Concomitant]
     Active Substance: SUCRALFATE
     Dosage: UNK
  9. SYNTHROID [Concomitant]
     Active Substance: LEVOTHYROXINE SODIUM
     Dosage: UNK
  10. LASIX [Concomitant]
     Active Substance: FUROSEMIDE
     Dosage: UNK
  11. DILTIAZEM [Concomitant]
     Active Substance: DILTIAZEM
     Dosage: UNK, QD (24HR)
  12. OXYGEN [Concomitant]
     Active Substance: OXYGEN
     Dosage: UNK

REACTIONS (2)
  - Lacrimation increased [Not Recovered/Not Resolved]
  - Eyelids pruritus [Not Recovered/Not Resolved]
